FAERS Safety Report 12332814 (Version 1)
Quarter: 2016Q2

REPORT INFORMATION
  Report Type: Spontaneous
  Country: DE (occurrence: DE)
  Receive Date: 20160504
  Receipt Date: 20160504
  Transmission Date: 20160815
  Serious: Yes (Disabling, Other)
  Sender: FDA-Public Use
  Company Number: GXKR2016DE002172

PATIENT
  Sex: Female

DRUGS (3)
  1. PANTOPRAZOLE SODIUM. [Suspect]
     Active Substance: PANTOPRAZOLE SODIUM
     Indication: ABDOMINAL PAIN UPPER
     Dosage: 40 MG, BID
     Route: 048
     Dates: start: 20160411
  2. L-THYROXIN HENNING [Interacting]
     Active Substance: LEVOTHYROXINE SODIUM
     Indication: HYPOTHYROIDISM
     Dosage: 50 UG, QD,LONG-TERM TREATMENT
     Route: 048
     Dates: end: 20160411
  3. PANTOPRAZOLE SODIUM. [Interacting]
     Active Substance: PANTOPRAZOLE SODIUM
     Indication: DYSPEPSIA

REACTIONS (3)
  - Drug administration error [Unknown]
  - Hormone level abnormal [Unknown]
  - Treatment noncompliance [None]
